FAERS Safety Report 4603925-7 (Version None)
Quarter: 2005Q1

REPORT INFORMATION
  Report Type: 
  Country: None (occurrence: None)
  Receive Date: 20050310
  Receipt Date: 20050303
  Transmission Date: 20050727
  Serious: Yes (Hospitalization)
  Sender: FDA-Public Use
  Company Number: US-GLAXOSMITHKLINE-A0548169A

PATIENT
  Age: 61 Year
  Sex: Male

DRUGS (3)
  1. LAMICTAL [Suspect]
     Indication: EPILEPSY
     Route: 048
     Dates: start: 20020101
  2. INSULIN [Concomitant]
  3. FOSINOPRIL [Concomitant]

REACTIONS (3)
  - INTENTIONAL MISUSE [None]
  - MENTAL STATUS CHANGES [None]
  - SUICIDE ATTEMPT [None]
